FAERS Safety Report 9113860 (Version 1)
Quarter: 2013Q1

REPORT INFORMATION
  Report Type: Spontaneous
  Country: US (occurrence: US)
  Receive Date: 20130208
  Receipt Date: 20130208
  Transmission Date: 20140127
  Serious: Yes (Death)
  Sender: FDA-Public Use
  Company Number: CHPA2013US002520

PATIENT
  Age: 54 Year
  Sex: Female

DRUGS (11)
  1. ACETAMINOPHEN, DIPHENHYDRAMINE CITRATE [Suspect]
     Dosage: UNK, UNK
     Route: 048
  2. AMITRIPTYLINE [Suspect]
     Dosage: UNK, UNK
     Route: 048
  3. TRAZODONE [Suspect]
     Dosage: UNK, UNK
     Route: 048
  4. GABAPENTIN [Suspect]
     Dosage: UNK, UNK
     Route: 048
  5. LISINOPRIL [Suspect]
     Dosage: UNK, UNK
     Route: 048
  6. MONTELUKAST [Suspect]
     Dosage: UNK, UNK
     Route: 048
  7. CETIRIZINE [Suspect]
     Dosage: UNK, UNK
     Route: 048
  8. DOCUSATE [Suspect]
     Dosage: UNK, UNK
     Route: 048
  9. PREDNISONE [Suspect]
     Dosage: UNK, UNK
     Route: 048
  10. LAXATIVES [Suspect]
     Dosage: UNK, UNK
     Route: 048
  11. HYDROXYZINE [Suspect]
     Dosage: UNK, UNK
     Route: 048

REACTIONS (1)
  - Death [Fatal]
